FAERS Safety Report 13613738 (Version 1)
Quarter: 2017Q2

REPORT INFORMATION
  Report Type: Spontaneous
  Country: FR (occurrence: FR)
  Receive Date: 20170606
  Receipt Date: 20170606
  Transmission Date: 20170830
  Serious: Yes (Disabling, Other)
  Sender: FDA-Public Use
  Company Number: FR-BEH-2017080933

PATIENT
  Age: 31 Year
  Sex: Female

DRUGS (2)
  1. RHOPHYLAC [Suspect]
     Active Substance: HUMAN RHO(D) IMMUNE GLOBULIN
     Indication: ALLOIMMUNISATION
     Dosage: 1 DF, TOT
     Route: 042
     Dates: start: 20170225
  2. RHOPHYLAC [Suspect]
     Active Substance: HUMAN RHO(D) IMMUNE GLOBULIN
     Indication: RHESUS INCOMPATIBILITY

REACTIONS (9)
  - Central nervous system inflammation [Not Recovered/Not Resolved]
  - Angioedema [Unknown]
  - Hypoaesthesia [Unknown]
  - Chest pain [Unknown]
  - Asthenia [Not Recovered/Not Resolved]
  - Pericarditis [Unknown]
  - Paraesthesia [Not Recovered/Not Resolved]
  - Hypoaesthesia [Not Recovered/Not Resolved]
  - Multiple sclerosis relapse [Not Recovered/Not Resolved]

NARRATIVE: CASE EVENT DATE: 201703
